FAERS Safety Report 12778240 (Version 6)
Quarter: 2016Q4

REPORT INFORMATION
  Report Type: Spontaneous
  Country: US (occurrence: US)
  Receive Date: 20160925
  Receipt Date: 20161012
  Transmission Date: 20170207
  Serious: Yes (Other)
  Sender: FDA-Public Use
  Company Number: US-BEH-2016073701

PATIENT
  Age: 6 Year
  Sex: Female
  Weight: 16.42 kg

DRUGS (6)
  1. AMICAR [Concomitant]
     Active Substance: AMINOCAPROIC ACID
     Indication: PRODUCT USED FOR UNKNOWN INDICATION
     Dosage: 4 ML, Q 6 HOURS PRN
     Route: 048
  2. STIMATE [Suspect]
     Active Substance: DESMOPRESSIN ACETATE
     Indication: PRODUCT USED FOR UNKNOWN INDICATION
     Dosage: ^AS DIRECTED^
     Route: 045
  3. MULTIVITAMIN                       /00097801/ [Concomitant]
     Active Substance: VITAMINS
  4. FERROUS SULFATE. [Concomitant]
     Active Substance: FERROUS SULFATE
     Indication: PRODUCT USED FOR UNKNOWN INDICATION
     Dosage: UNK UNK, QD
     Route: 065
  5. HAEMATE P [Suspect]
     Active Substance: ANTIHEMOPHILIC FACTOR HUMAN
     Dosage: 1000 RCOF UNITS
     Route: 065
     Dates: start: 20150211
  6. HAEMATE P [Suspect]
     Active Substance: ANTIHEMOPHILIC FACTOR HUMAN
     Indication: VON WILLEBRAND^S DISEASE
     Dosage: 1000 RCOF UNITS
     Route: 065
     Dates: start: 20150211

REACTIONS (5)
  - Faeces discoloured [Recovered/Resolved]
  - Faeces discoloured [Recovered/Resolved]
  - Dysuria [Recovered/Resolved]
  - Cough [Recovered/Resolved]
  - Pharyngeal haemorrhage [Recovered/Resolved]

NARRATIVE: CASE EVENT DATE: 20160917
